FAERS Safety Report 6449936-0 (Version None)
Quarter: 2009Q4

REPORT INFORMATION
  Report Type: 
  Country: None (occurrence: None)
  Receive Date: 20091123
  Receipt Date: 20091113
  Transmission Date: 20100525
  Serious: Yes (Hospitalization)
  Sender: FDA-Public Use
  Company Number: FR-B.I. PHARMACEUTICALS,INC./RIDGEFIELD-2009-BP-13485YA

PATIENT
  Sex: Male

DRUGS (11)
  1. TAMSULOSIN HCL [Suspect]
     Route: 048
     Dates: start: 20090515, end: 20090725
  2. LYRICA [Suspect]
     Dosage: 150 MG
     Route: 048
     Dates: start: 20090326, end: 20090724
  3. TRAMADOL HCL [Suspect]
     Dosage: 200 MG
     Route: 048
     Dates: start: 20090511, end: 20090725
  4. DIFFU K (POSTASSIUM CHLORIDE) [Suspect]
     Route: 048
     Dates: start: 20090429, end: 20090725
  5. AMLOR [Concomitant]
  6. LANTUS [Concomitant]
  7. NOVONORM [Concomitant]
  8. PLAVIX [Concomitant]
  9. KARDEGIC [Concomitant]
  10. PRAVASTATIN SODIUM [Concomitant]
  11. RIVOTRIL [Concomitant]

REACTIONS (4)
  - EOSINOPHILIA [None]
  - RASH ERYTHEMATOUS [None]
  - RASH GENERALISED [None]
  - RASH PUSTULAR [None]
